FAERS Safety Report 5036806-8 (Version None)
Quarter: 2006Q2

REPORT INFORMATION
  Report Type: 
  Country: None (occurrence: None)
  Receive Date: 20060601
  Receipt Date: 20060313
  Transmission Date: 20061013
  Serious: Yes (Hospitalization)
  Sender: FDA-Public Use
  Company Number: US200603003589

PATIENT
  Age: 65 Year
  Sex: Male

DRUGS (9)
  1. CYMBALTA [Suspect]
     Indication: BACK DISORDER
     Dosage: 60 MG, DAILY (1/D); SEE IMAGE
     Dates: start: 20050901
  2. VERAPAMIL [Concomitant]
  3. LIPITOR [Concomitant]
  4. FLOMAX [Concomitant]
  5. MIRAPEX [Concomitant]
  6. NEXIUM [Concomitant]
  7. ISOSORBIDE (ISOSORBIDE) [Concomitant]
  8. FISH OIL (FISH OIL) [Concomitant]
  9. MULTIVITAMINS (ASCORBIC ACID, ERGOCALCIFEROL, FOLIC ACID, NICOTINAMIDE [Concomitant]

REACTIONS (2)
  - ANAEMIA [None]
  - FLUID RETENTION [None]
